FAERS Safety Report 9076714 (Version 1)
Quarter: 2013Q1

REPORT INFORMATION
  Report Type: Report from Study
  Country: US (occurrence: US)
  Receive Date: 20130129
  Receipt Date: 20130129
  Transmission Date: 20140127
  Serious: No
  Sender: FDA-Public Use
  Company Number: US-ABBOTT-12P-163-0949461-00

PATIENT
  Age: 40 Year
  Sex: Male

DRUGS (4)
  1. HUMIRA 40 MG/0.8 ML PEN [Suspect]
     Indication: CROHN^S DISEASE
     Dates: start: 201204
  2. VALCYTE [Concomitant]
     Indication: VIRAL INFECTION
  3. METRONIDAZOLE [Concomitant]
     Indication: CROHN^S DISEASE
  4. LIALDA [Concomitant]
     Indication: CROHN^S DISEASE

REACTIONS (5)
  - Oropharyngeal pain [Recovering/Resolving]
  - Pain [Recovering/Resolving]
  - Pharyngitis streptococcal [Recovering/Resolving]
  - Oropharyngeal pain [Not Recovered/Not Resolved]
  - Drug ineffective [Not Recovered/Not Resolved]
